FAERS Safety Report 22079187 (Version 1)
Quarter: 2023Q1

REPORT INFORMATION
  Report Type: Spontaneous
  Country: FR (occurrence: FR)
  Receive Date: 20230309
  Receipt Date: 20230309
  Transmission Date: 20230417
  Serious: Yes (Hospitalization, Other)
  Sender: FDA-Public Use
  Company Number: FR-AMGEN-FRASP2023039670

PATIENT

DRUGS (5)
  1. ADALIMUMAB [Suspect]
     Active Substance: ADALIMUMAB
     Indication: Crohn^s disease
     Dosage: UNK
     Route: 065
  2. ADALIMUMAB [Suspect]
     Active Substance: ADALIMUMAB
     Indication: Colitis ulcerative
  3. AZATHIOPRINE [Concomitant]
     Active Substance: AZATHIOPRINE
     Route: 048
  4. GOLIMUMAB [Concomitant]
     Active Substance: GOLIMUMAB
     Route: 048
  5. USTEKINUMAB [Concomitant]
     Active Substance: USTEKINUMAB

REACTIONS (3)
  - Unevaluable event [Unknown]
  - Crohn^s disease [Unknown]
  - Colitis ulcerative [Unknown]
